FAERS Safety Report 7091398-7 (Version None)
Quarter: 2010Q4

REPORT INFORMATION
  Report Type: 
  Country: None (occurrence: None)
  Receive Date: 20101109
  Receipt Date: 20101103
  Transmission Date: 20110411
  Serious: Yes (Other)
  Sender: FDA-Public Use
  Company Number: A0891277A

PATIENT
  Sex: Female

DRUGS (1)
  1. AROPAX [Suspect]
     Indication: DEPRESSION
     Dosage: 20MG UNKNOWN
     Dates: start: 20100730

REACTIONS (4)
  - AGGRESSION [None]
  - INSOMNIA [None]
  - NOCTURIA [None]
  - POOR QUALITY SLEEP [None]
